FAERS Safety Report 16282045 (Version 1)
Quarter: 2019Q2

REPORT INFORMATION
  Report Type: Spontaneous
  Country: CN (occurrence: CN)
  Receive Date: 20190507
  Receipt Date: 20190507
  Transmission Date: 20190711
  Serious: Yes (Hospitalization, Other)
  Sender: FDA-Public Use
  Company Number: CN-GLAXOSMITHKLINE-CN2019APC078435

PATIENT

DRUGS (6)
  1. RABEPRAZOLE [Concomitant]
     Active Substance: RABEPRAZOLE
     Indication: GASTROINTESTINAL DISORDER PROPHYLAXIS
     Dosage: 20 MG, QD
     Route: 048
     Dates: start: 20190415, end: 20190425
  2. DOXOFYLLINE INJECTION [Concomitant]
     Active Substance: DOXOFYLLINE
     Indication: PNEUMONIA
     Dosage: 0.3 G, QD
     Route: 041
     Dates: start: 20190415, end: 20190425
  3. AMBROXOL [Concomitant]
     Active Substance: AMBROXOL
     Indication: PNEUMONIA
     Dosage: 30 MG, TID
     Route: 048
     Dates: start: 20190415, end: 20190425
  4. SERETIDE [Suspect]
     Active Substance: FLUTICASONE PROPIONATE\SALMETEROL XINAFOATE
     Indication: BRONCHITIS
     Dosage: 300 UG, BID
     Route: 055
     Dates: start: 20190419, end: 20190425
  5. ETIMICIN SULFATE INJECTION [Suspect]
     Active Substance: ETIMICIN SULFATE
     Indication: PNEUMONIA
     Dosage: 0.2 G, QD
     Route: 041
     Dates: start: 20190415, end: 20190422
  6. CEFTRIAXONE + TAZOBACTAM [Suspect]
     Active Substance: CEFTRIAXONE SODIUM\TAZOBACTAM SODIUM
     Indication: PNEUMONIA
     Dosage: 2 G, BID
     Route: 041
     Dates: start: 20190415, end: 20190425

REACTIONS (3)
  - Dermatitis allergic [Recovering/Resolving]
  - Rash [Recovering/Resolving]
  - Pyrexia [Recovering/Resolving]
